FAERS Safety Report 23574654 (Version 1)
Quarter: 2024Q1

REPORT INFORMATION
  Report Type: Spontaneous
  Country: IN (occurrence: IN)
  Receive Date: 20240228
  Receipt Date: 20240228
  Transmission Date: 20240410
  Serious: Yes (Other)
  Sender: FDA-Public Use
  Company Number: IN-AMGEN-INDSP2024036313

PATIENT
  Age: 42 Year
  Sex: Male

DRUGS (6)
  1. FILGRASTIM [Suspect]
     Active Substance: FILGRASTIM
     Indication: Acute myeloid leukaemia
     Dosage: 5 MICROGRAM/KILOGRAM/DOSE, DOSE FOR A TOTAL OF SIX DOSES FROM DAYS
     Route: 058
  2. DAUNORUBICIN [Concomitant]
     Active Substance: DAUNORUBICIN
     Indication: Acute myeloid leukaemia refractory
  3. CYTARABINE [Concomitant]
     Active Substance: CYTARABINE
     Indication: Acute myeloid leukaemia refractory
  4. BORTEZOMIB [Concomitant]
     Active Substance: BORTEZOMIB
     Indication: Acute myeloid leukaemia refractory
     Dosage: 1.3 MILLIGRAM/SQ. METER,  ON DAYS 1, 4, 8, AND 11
     Route: 058
  5. FLUDARABINE [Concomitant]
     Active Substance: FLUDARABINE PHOSPHATE
     Indication: Acute myeloid leukaemia refractory
     Dosage: 30 MILLIGRAM/SQ. METER, QD, FROM DAYS 1 TO 5, TOTALING FIVE DOSES
  6. CYTOSINE [Concomitant]
     Active Substance: CYTOSINE
     Indication: Acute myeloid leukaemia refractory
     Dosage: 2 GRAM PER SQUARE METRE, QD, OR FOUR HOURS, STARTING FOUR HOURS AFTER FLUDARABINE ON DAYS 1 TO 5, TO

REACTIONS (2)
  - Febrile neutropenia [Recovered/Resolved]
  - Pseudomonal sepsis [Unknown]
